FAERS Safety Report 8044531-4 (Version None)
Quarter: 2012Q1

REPORT INFORMATION
  Report Type: 
  Country: None (occurrence: None)
  Receive Date: 20120113
  Receipt Date: 20120103
  Transmission Date: 20120608
  Serious: Yes (Hospitalization)
  Sender: FDA-Public Use
  Company Number: US-JNJFOC-20111210284

PATIENT
  Sex: Female
  Weight: 43.6 kg

DRUGS (5)
  1. INFLIXIMAB, RECOMBINANT [Suspect]
     Indication: INFLAMMATORY BOWEL DISEASE
     Route: 042
  2. CIMZIA [Concomitant]
     Dates: start: 20101011
  3. PREDNISONE [Concomitant]
  4. CIMZIA [Concomitant]
  5. BUDESONIDE [Concomitant]

REACTIONS (1)
  - ABDOMINAL ABSCESS [None]
